FAERS Safety Report 8166407-4 (Version None)
Quarter: 2012Q1

REPORT INFORMATION
  Report Type: 
  Country: None (occurrence: None)
  Receive Date: 20120227
  Receipt Date: 20110718
  Transmission Date: 20120608
  Serious: No
  Sender: FDA-Public Use
  Company Number: US-MYLANLABS-2011S1014868

PATIENT
  Age: 34 Year
  Sex: Female

DRUGS (1)
  1. ISOTRETINOIN [Suspect]
     Indication: ACNE
     Route: 048
     Dates: start: 20110601, end: 20110712

REACTIONS (2)
  - DEPRESSED MOOD [None]
  - FATIGUE [None]
